FAERS Safety Report 18916268 (Version 1)
Quarter: 2021Q1

REPORT INFORMATION
  Report Type: Spontaneous
  Country: US (occurrence: US)
  Receive Date: 20210219
  Receipt Date: 20210219
  Transmission Date: 20210420
  Serious: Yes (Other)
  Sender: FDA-Public Use
  Company Number: None

PATIENT
  Age: 61 Year
  Sex: Male
  Weight: 123.38 kg

DRUGS (2)
  1. PREGABALIN 100MG [Suspect]
     Active Substance: PREGABALIN
     Indication: DIABETIC NEUROPATHY
     Route: 048
     Dates: start: 20160812, end: 20210127
  2. GABAPENTIN 100MG [Suspect]
     Active Substance: GABAPENTIN
     Indication: DIABETIC NEUROPATHY
     Route: 048
     Dates: start: 20160603, end: 20190812

REACTIONS (1)
  - Vision blurred [None]

NARRATIVE: CASE EVENT DATE: 20210203
